FAERS Safety Report 9042882 (Version 1)
Quarter: 2013Q1

REPORT INFORMATION
  Report Type: Report from Study
  Country: US (occurrence: US)
  Receive Date: 20130129
  Receipt Date: 20130129
  Transmission Date: 20140127
  Serious: No
  Sender: FDA-Public Use
  Company Number: US-ABBOTT-12P-163-0912082-00

PATIENT
  Age: 28 Year
  Sex: Female

DRUGS (6)
  1. HUMIRA 40 MG/0.8 ML PEN [Suspect]
     Indication: PSORIASIS
     Dates: start: 20120110
  2. METHOTREXATE [Concomitant]
     Indication: PSORIASIS
     Dosage: 2.5 MG X 5 TABLETS WEEKLY
  3. FLUCONAZOLE [Concomitant]
     Indication: FUNGAL INFECTION
  4. ALEVE OTC [Concomitant]
     Indication: HEADACHE
  5. IBUPROFEN OTC [Concomitant]
     Indication: HEADACHE
  6. VENTOLIN [Concomitant]
     Indication: ASTHMA

REACTIONS (3)
  - Cough [Recovering/Resolving]
  - Sinus congestion [Unknown]
  - Chest discomfort [Unknown]
